FAERS Safety Report 9416504 (Version 1)
Quarter: 2013Q3

REPORT INFORMATION
  Report Type: Spontaneous
  Country: BR (occurrence: BR)
  Receive Date: 20130719
  Receipt Date: 20130719
  Transmission Date: 20140515
  Serious: Yes (Hospitalization)
  Sender: FDA-Public Use
  Company Number: 2013P1011939

PATIENT
  Age: 61 Year
  Sex: Female

DRUGS (3)
  1. ZOLEDRONIC ACID [Suspect]
     Indication: OSTEITIS DEFORMANS
     Route: 042
  2. ERGOCALCIFEROL [Concomitant]
  3. ELEMENTAL CALCIUM [Concomitant]

REACTIONS (8)
  - Confusional state [None]
  - Agitation [None]
  - Disorientation [None]
  - Urinary incontinence [None]
  - Influenza like illness [None]
  - Pyrexia [None]
  - Hypotension [None]
  - Hypocalcaemia [None]
